FAERS Safety Report 25308687 (Version 3)
Quarter: 2025Q3

REPORT INFORMATION
  Report Type: Spontaneous
  Country: US (occurrence: US)
  Receive Date: 20250513
  Receipt Date: 20250821
  Transmission Date: 20251020
  Serious: No
  Sender: SANOFI AVENTIS
  Company Number: US-SA-2025SA134699

PATIENT
  Age: 11 Year
  Sex: Female

DRUGS (1)
  1. DUPIXENT [Suspect]
     Active Substance: DUPILUMAB
     Indication: Eosinophilic oesophagitis
     Dosage: 300 MG, QW
     Route: 058

REACTIONS (6)
  - Injection site pain [Unknown]
  - Injection site swelling [Unknown]
  - Bone pain [Unknown]
  - Ocular hyperaemia [Unknown]
  - Product dose omission in error [Unknown]
  - Product preparation error [Unknown]
